FAERS Safety Report 8728795 (Version 2)
Quarter: 2012Q4

REPORT INFORMATION
  Report Type: 
  Country: US (occurrence: US)
  Receive Date: 20120817
  Receipt Date: 20120920
  Transmission Date: 20130627
  Serious: Yes (Other)
  Sender: FDA-Public Use
  Company Number: US-PFIZER INC-2012197574

PATIENT

DRUGS (1)
  1. NEURONTIN [Suspect]
     Indication: EPILEPSY
     Dosage: UNK

REACTIONS (14)
  - Epilepsy [Unknown]
  - Nephrolithiasis [Unknown]
  - Brain injury [Unknown]
  - Haemorrhage [Unknown]
  - Coma [Unknown]
  - Nervous system disorder [Unknown]
  - Impaired work ability [Unknown]
  - Fall [Unknown]
  - Pain [Unknown]
  - Drug ineffective [Unknown]
  - Dysuria [Unknown]
  - Renal pain [Unknown]
  - Back injury [Unknown]
  - Memory impairment [Unknown]
